FAERS Safety Report 5519720-0 (Version None)
Quarter: 2007Q4

REPORT INFORMATION
  Report Type: 
  Country: None (occurrence: None)
  Receive Date: 20071116
  Receipt Date: 20070720
  Transmission Date: 20080405
  Serious: No
  Sender: FDA-Public Use
  Company Number: A0665393A

PATIENT
  Age: 73 Year
  Sex: Male

DRUGS (7)
  1. COREG CR [Suspect]
     Indication: HYPERTENSION
     Dosage: 80MG PER DAY
     Route: 048
     Dates: start: 20070501, end: 20070601
  2. SYNTHROID [Concomitant]
  3. LISINOPRIL [Concomitant]
  4. CRESTOR [Concomitant]
  5. WARFARIN SODIUM [Concomitant]
  6. ASPIRIN [Concomitant]
  7. ONE A DAY VITAMIN [Concomitant]

REACTIONS (2)
  - ABDOMINAL PAIN UPPER [None]
  - FATIGUE [None]
